FAERS Safety Report 9943155 (Version 1)
Quarter: 2014Q1

REPORT INFORMATION
  Report Type: Spontaneous
  Country: US (occurrence: US)
  Receive Date: 20140303
  Receipt Date: 20140303
  Transmission Date: 20141002
  Serious: Yes (Hospitalization)
  Sender: FDA-Public Use
  Company Number: US-GLAXOSMITHKLINE-A1062340A

PATIENT
  Age: 61 Year
  Sex: Female

DRUGS (4)
  1. INFLUENZA VACCINE UNSPECIFIED 2012-13 SEASON [Suspect]
     Indication: PROPHYLAXIS
     Route: 065
     Dates: start: 201211, end: 201211
  2. ADVAIR [Suspect]
     Indication: CHRONIC OBSTRUCTIVE PULMONARY DISEASE
     Dosage: 1PUFF TWICE PER DAY
     Route: 055
  3. PROAIR HFA [Concomitant]
  4. VENTOLIN [Concomitant]

REACTIONS (6)
  - Influenza [Recovered/Resolved]
  - Pneumonia [Recovered/Resolved]
  - Atrial fibrillation [Recovered/Resolved]
  - Dyspnoea [Recovered/Resolved]
  - Drug administration error [Unknown]
  - Vaccination failure [Unknown]
